FAERS Safety Report 8772576 (Version 5)
Quarter: 2015Q3

REPORT INFORMATION
  Report Type: Spontaneous
  Country: US (occurrence: US)
  Receive Date: 20120905
  Receipt Date: 20150713
  Transmission Date: 20151125
  Serious: Yes (Hospitalization, Disabling)
  Sender: FDA-Public Use
  Company Number: US-MERCK-1208USA012616

PATIENT
  Sex: Male
  Weight: 72.11 kg

DRUGS (1)
  1. PROPECIA [Suspect]
     Active Substance: FINASTERIDE
     Indication: ANDROGENETIC ALOPECIA
     Dosage: 1 MG, QD
     Route: 048
     Dates: start: 20080507, end: 201103

REACTIONS (25)
  - Cognitive disorder [Not Recovered/Not Resolved]
  - Groin pain [Unknown]
  - Joint injury [Unknown]
  - Postoperative ileus [Unknown]
  - Organic erectile dysfunction [Unknown]
  - Penis disorder [Unknown]
  - Arthralgia [Unknown]
  - Flank pain [Unknown]
  - Musculoskeletal discomfort [Unknown]
  - Scrotal pain [Unknown]
  - Fatigue [Unknown]
  - Epididymitis [Unknown]
  - Semen volume decreased [Unknown]
  - Ejaculation failure [Unknown]
  - Poikiloderma [Unknown]
  - Gastrooesophageal reflux disease [Unknown]
  - Back pain [Not Recovered/Not Resolved]
  - Sexual dysfunction [Not Recovered/Not Resolved]
  - Melanocytic naevus [Unknown]
  - Libido decreased [Unknown]
  - Testicular pain [Not Recovered/Not Resolved]
  - Appendicectomy [Unknown]
  - Total sperm count decreased [Unknown]
  - Erectile dysfunction [Unknown]
  - Back pain [Not Recovered/Not Resolved]

NARRATIVE: CASE EVENT DATE: 2008
